FAERS Safety Report 9166381 (Version 1)
Quarter: 2013Q1

REPORT INFORMATION
  Report Type: Spontaneous
  Country: US (occurrence: US)
  Receive Date: 20130315
  Receipt Date: 20130315
  Transmission Date: 20140127
  Serious: No
  Sender: FDA-Public Use
  Company Number: US-PFIZER INC-2013083384

PATIENT
  Age: 10 Year
  Sex: Female

DRUGS (2)
  1. ALAVERT [Suspect]
     Indication: HYPERSENSITIVITY
     Dosage: UNK
  2. ALAVERT [Suspect]
     Indication: ECZEMA

REACTIONS (2)
  - Intentional drug misuse [Unknown]
  - Dependence [Unknown]
